FAERS Safety Report 16935781 (Version 2)
Quarter: 2019Q4

REPORT INFORMATION
  Report Type: Spontaneous
  Country: FR (occurrence: FR)
  Receive Date: 20191018
  Receipt Date: 20191023
  Transmission Date: 20200122
  Serious: Yes (Disabling, Other)
  Sender: FDA-Public Use
  Company Number: FR-009507513-1910FRA011093

PATIENT
  Sex: Male

DRUGS (1)
  1. JANUVIA [Suspect]
     Active Substance: SITAGLIPTIN PHOSPHATE
     Dosage: STRENGTH 100 MILLIGRAM, 1 TABLET IN THE MORNING AND 1 TABLET IN THE EVENING
     Route: 048

REACTIONS (9)
  - Gamma-glutamyltransferase increased [Unknown]
  - Glycosylated haemoglobin increased [Unknown]
  - Alanine aminotransferase increased [Unknown]
  - Aspartate aminotransferase increased [Unknown]
  - Adverse event [Unknown]
  - Product prescribing error [Unknown]
  - Prescribed overdose [Unknown]
  - Hepatocellular carcinoma [Unknown]
  - Liver transplant [Unknown]
